FAERS Safety Report 5661414-5 (Version None)
Quarter: 2008Q1

REPORT INFORMATION
  Report Type: 
  Country: None (occurrence: None)
  Receive Date: 20080311
  Receipt Date: 20080228
  Transmission Date: 20080703
  Serious: Yes (Other)
  Sender: FDA-Public Use
  Company Number: JP-PFIZER INC-2008019247

PATIENT
  Age: 63 Year
  Sex: Female

DRUGS (1)
  1. GABAPEN [Suspect]
     Indication: PAIN MANAGEMENT
     Dosage: DAILY DOSE:600MG
     Route: 048

REACTIONS (1)
  - BLOOD POTASSIUM INCREASED [None]
